FAERS Safety Report 8027345-0 (Version None)
Quarter: 2012Q1

REPORT INFORMATION
  Report Type: 
  Country: None (occurrence: None)
  Receive Date: 20120105
  Receipt Date: 20120105
  Transmission Date: 20120608
  Serious: Yes (Other)
  Sender: FDA-Public Use
  Company Number: None

PATIENT
  Sex: Male
  Weight: 57.2 kg

DRUGS (2)
  1. DEPAKOTE [Suspect]
     Indication: EPILEPSY
     Dosage: ONE BID PO
     Route: 048
     Dates: start: 20080620
  2. DEPAKOTE [Suspect]
     Dosage: ONE QHS PO
     Route: 048

REACTIONS (2)
  - PRODUCT SUBSTITUTION ISSUE [None]
  - EPILEPSY [None]
